FAERS Safety Report 17407942 (Version 1)
Quarter: 2020Q1

REPORT INFORMATION
  Report Type: Spontaneous
  Country: US (occurrence: US)
  Receive Date: 20200212
  Receipt Date: 20200212
  Transmission Date: 20200409
  Serious: No
  Sender: FDA-Public Use
  Company Number: US-PFIZER INC-2019142942

PATIENT
  Age: 38 Year
  Sex: Female

DRUGS (3)
  1. LYRICA [Suspect]
     Active Substance: PREGABALIN
     Indication: FIBROMYALGIA
     Dosage: 75 MG, 3X/DAY (TAKE 1 CAPSULE 3 TIMES A DAY AS DIRECTED)
     Route: 048
  2. LYRICA [Suspect]
     Active Substance: PREGABALIN
     Dosage: 225 MG, 2X/DAY (3 TABLETS TWO TIMES PER DAY)
     Route: 048
  3. LYRICA [Suspect]
     Active Substance: PREGABALIN
     Dosage: 300 MG, 2X/DAY (TAKE 1 CAPSULE TWICE A DAY)
     Route: 048

REACTIONS (2)
  - Nausea [Recovered/Resolved]
  - Off label use [Unknown]
